FAERS Safety Report 8173236-4 (Version None)
Quarter: 2012Q1

REPORT INFORMATION
  Report Type: 
  Country: None (occurrence: None)
  Receive Date: 20120229
  Receipt Date: 20111104
  Transmission Date: 20120608
  Serious: No
  Sender: FDA-Public Use
  Company Number: US-GLAXOSMITHKLINE-A0952645A

PATIENT
  Age: 52 Year
  Sex: Female

DRUGS (2)
  1. GSK AUTOINJECTOR [Suspect]
     Indication: PRODUCT USED FOR UNKNOWN INDICATION
     Route: 058
  2. SUMATRIPTAN [Suspect]
     Indication: PRODUCT USED FOR UNKNOWN INDICATION
     Dosage: 6MG UNKNOWN
     Route: 058

REACTIONS (1)
  - EXPIRED DRUG ADMINISTERED [None]
